FAERS Safety Report 20636608 (Version 1)
Quarter: 2022Q1

REPORT INFORMATION
  Report Type: Spontaneous
  Country: US (occurrence: None)
  Receive Date: 20220324
  Receipt Date: 20220324
  Transmission Date: 20220423
  Serious: Yes (Other)
  Sender: FDA-Public Use
  Company Number: None

PATIENT
  Age: 30 Year
  Sex: Female

DRUGS (1)
  1. CVS HEALTH ACNE CONTROL CLEANSER ACNE MEDICATION [Suspect]
     Active Substance: BENZOYL PEROXIDE
     Indication: Acne
     Route: 061
     Dates: start: 20220323, end: 20220324

REACTIONS (3)
  - Swelling face [None]
  - Periorbital swelling [None]
  - Pruritus [None]

NARRATIVE: CASE EVENT DATE: 20220324
